FAERS Safety Report 9519607 (Version 1)
Quarter: 2013Q3

REPORT INFORMATION
  Report Type: Report from Study
  Country: US (occurrence: US)
  Receive Date: 20130912
  Receipt Date: 20130912
  Transmission Date: 20140515
  Serious: Yes (Hospitalization)
  Sender: FDA-Public Use
  Company Number: US-ACTELION-A-US2013-88141

PATIENT
  Age: 18 Year
  Sex: Female

DRUGS (2)
  1. VELETRI [Suspect]
     Indication: PULMONARY ARTERIAL HYPERTENSION
     Dosage: 8 NG/KG, UNK
     Route: 042
     Dates: start: 20130710
  2. SILDENAFIL [Concomitant]

REACTIONS (3)
  - Dysuria [Unknown]
  - Pollakiuria [Unknown]
  - Pulmonary arterial hypertension [Unknown]
